FAERS Safety Report 25689725 (Version 1)
Quarter: 2025Q3

REPORT INFORMATION
  Report Type: Spontaneous
  Country: US (occurrence: None)
  Receive Date: 20250815
  Receipt Date: 20250815
  Transmission Date: 20251020
  Serious: No
  Sender: FDA-CTU
  Company Number: None

PATIENT
  Age: 38 Year
  Sex: Female
  Weight: 56.25 kg

DRUGS (6)
  1. AIMOVIG [Suspect]
     Active Substance: ERENUMAB-AOOE
     Indication: Migraine with aura
     Route: 030
     Dates: start: 20250508, end: 20250801
  2. Nurtec (rimegepant) 75mg [Concomitant]
  3. Famotidine (20mg) [Concomitant]
  4. VITAMIN B12 [Concomitant]
     Active Substance: CYANOCOBALAMIN
  5. IRON [Concomitant]
     Active Substance: IRON
  6. MAGNESIUM [Concomitant]
     Active Substance: MAGNESIUM

REACTIONS (7)
  - Constipation [None]
  - Raynaud^s phenomenon [None]
  - Back pain [None]
  - Irritability [None]
  - Depression [None]
  - Disease recurrence [None]
  - Anhedonia [None]

NARRATIVE: CASE EVENT DATE: 20250701
